FAERS Safety Report 19098697 (Version 1)
Quarter: 2021Q2

REPORT INFORMATION
  Report Type: Spontaneous
  Country: DE (occurrence: DE)
  Receive Date: 20210406
  Receipt Date: 20210406
  Transmission Date: 20210717
  Serious: Yes (Hospitalization, Other)
  Sender: FDA-Public Use
  Company Number: NVSC2021DE069025

PATIENT
  Sex: Female

DRUGS (2)
  1. ACICLOVIR [Suspect]
     Active Substance: ACYCLOVIR
     Indication: HERPES DERMATITIS
     Dosage: 4000 MG, QD
     Route: 065
     Dates: start: 20210121
  2. ACICLOVIR HEUMANN [Suspect]
     Active Substance: ACYCLOVIR
     Indication: HERPES DERMATITIS
     Dosage: 800 MG, QD
     Route: 065
     Dates: start: 20210131

REACTIONS (2)
  - Leukopenia [Not Recovered/Not Resolved]
  - Pneumonia viral [Not Recovered/Not Resolved]
